FAERS Safety Report 5341159-1 (Version None)
Quarter: 2007Q2

REPORT INFORMATION
  Report Type: 
  Country: None (occurrence: None)
  Receive Date: 20070404
  Receipt Date: 20061219
  Transmission Date: 20071010
  Serious: No
  Sender: FDA-Public Use
  Company Number: US200612003570

PATIENT
  Sex: Male

DRUGS (5)
  1. ALIMTA [Suspect]
     Indication: LUNG NEOPLASM MALIGNANT
     Dosage: INTRAVENOUS
     Route: 042
     Dates: start: 20061101
  2. VITAMIN B12 [Concomitant]
  3. FOLIC ACID [Concomitant]
  4. DEXAMETHASONE TAB [Concomitant]
  5. ANTIHYPERTENSIVES [Concomitant]

REACTIONS (5)
  - ANOREXIA [None]
  - DYSGEUSIA [None]
  - NAUSEA [None]
  - VOMITING [None]
  - WEIGHT DECREASED [None]
